FAERS Safety Report 4317440-1 (Version None)
Quarter: 2004Q1

REPORT INFORMATION
  Report Type: 
  Country: None (occurrence: None)
  Receive Date: 20040312
  Receipt Date: 20040305
  Transmission Date: 20041129
  Serious: Yes (Life-Threatening, Hospitalization)
  Sender: FDA-Public Use
  Company Number: 2004PK00430

PATIENT
  Age: 42 Year
  Sex: Male
  Weight: 70 kg

DRUGS (5)
  1. OMEPRAZOLE [Suspect]
     Dates: start: 20031101
  2. OMEPRAZOLE [Suspect]
     Dates: start: 20031101
  3. OMEPRAZOLE [Suspect]
     Dates: start: 20041101
  4. ASPIRIN [Concomitant]
  5. ACETAMINOPHEN [Concomitant]

REACTIONS (1)
  - ANAPHYLACTIC REACTION [None]
